FAERS Safety Report 8318985-X (Version None)
Quarter: 2012Q2

REPORT INFORMATION
  Report Type: 
  Country: None (occurrence: None)
  Receive Date: 20120427
  Receipt Date: 20120417
  Transmission Date: 20120825
  Serious: Yes (Hospitalization, Other)
  Sender: FDA-Public Use
  Company Number: US-ABBOTT-12P-163-0927050-00

PATIENT
  Sex: Male
  Weight: 83.99 kg

DRUGS (4)
  1. HUMIRA [Suspect]
     Indication: PSORIASIS
  2. COUMADIN [Concomitant]
     Indication: POLYCYTHAEMIA VERA
     Dates: start: 20010101, end: 20120101
  3. HUMIRA [Suspect]
     Indication: PSORIATIC ARTHROPATHY
     Route: 058
     Dates: start: 20090101, end: 20120101
  4. COUMADIN [Concomitant]
     Dates: start: 20120201

REACTIONS (11)
  - NASAL DISCHARGE DISCOLOURATION [None]
  - APHONIA [None]
  - BURNING SENSATION [None]
  - PRECANCEROUS SKIN LESION [None]
  - SINUSITIS [None]
  - LABORATORY TEST ABNORMAL [None]
  - TOOTH DISORDER [None]
  - BREATH SOUNDS ABNORMAL [None]
  - INTERVERTEBRAL DISC PROTRUSION [None]
  - DYSPNOEA [None]
  - PULMONARY EMBOLISM [None]
